FAERS Safety Report 10242169 (Version 2)
Quarter: 2014Q2

REPORT INFORMATION
  Report Type: Report from Study
  Country: US (occurrence: US)
  Receive Date: 20140617
  Receipt Date: 20140617
  Transmission Date: 20141212
  Serious: Yes (Other)
  Sender: FDA-Public Use
  Company Number: US-SA-2014SA008028

PATIENT
  Age: 63 Year
  Sex: Female

DRUGS (2)
  1. AUBAGIO [Suspect]
     Indication: MULTIPLE SCLEROSIS
     Route: 048
     Dates: start: 20131212, end: 201405
  2. TECFIDERA [Concomitant]

REACTIONS (5)
  - Pain [Unknown]
  - Mobility decreased [Unknown]
  - Balance disorder [Recovering/Resolving]
  - Alopecia [Unknown]
  - Drug dose omission [Unknown]
